FAERS Safety Report 8975232 (Version 1)
Quarter: 2012Q4

REPORT INFORMATION
  Report Type: 
  Country: US (occurrence: US)
  Receive Date: 20121219
  Receipt Date: 20121219
  Transmission Date: 20130627
  Serious: No
  Sender: FDA-Public Use
  Company Number: US-TARO-2012P1059983

PATIENT
  Age: 86 Year
  Sex: Male
  Weight: 92.53 kg

DRUGS (4)
  1. FLUOROURACIL [Suspect]
     Route: 061
     Dates: start: 20120915, end: 20120925
  2. CHOLESTEROL [Concomitant]
  3. AMBIEN [Concomitant]
  4. FLOMAX [Concomitant]

REACTIONS (2)
  - Application site pruritus [Recovering/Resolving]
  - Application site pain [Recovered/Resolved]
